FAERS Safety Report 4384756-2 (Version None)
Quarter: 2004Q2

REPORT INFORMATION
  Report Type: 
  Country: None (occurrence: None)
  Receive Date: 20040621
  Receipt Date: 20040608
  Transmission Date: 20050107
  Serious: Yes (Death, Other)
  Sender: FDA-Public Use
  Company Number: 2004038760

PATIENT
  Age: 50 Year
  Sex: Female

DRUGS (5)
  1. MAGNEX (CEFOPERAZONE, SULBACTAM) [Suspect]
     Indication: ILL-DEFINED DISORDER
     Dosage: 2 GRAM (2 GRAM, ONCE) INTRAVENOUS
     Route: 042
     Dates: start: 20040514
  2. ALL OTHER NON-THERAPEUTIC PRODUCTS (ALL OTHER ON-THERAPEUTIC PRODUCTS) [Suspect]
     Indication: ILL-DEFINED DISORDER
     Dates: start: 20040514
  3. HYDROCORTISONE SODIUM SUCCINATE [Concomitant]
  4. DOPAMINE HCL [Concomitant]
  5. METOCLOPRAMIDE [Concomitant]

REACTIONS (1)
  - DEATH [None]
